FAERS Safety Report 25607640 (Version 1)
Quarter: 2025Q3

REPORT INFORMATION
  Report Type: Spontaneous
  Country: CN (occurrence: CN)
  Receive Date: 20250725
  Receipt Date: 20250725
  Transmission Date: 20251021
  Serious: Yes (Hospitalization, Other)
  Sender: RANBAXY
  Company Number: CN-SUN PHARMACEUTICAL INDUSTRIES LTD-2025R1-518395

PATIENT
  Age: 49 Year
  Sex: Male
  Weight: 70 kg

DRUGS (5)
  1. LEVOFLOXACIN [Suspect]
     Active Substance: LEVOFLOXACIN
     Indication: Infection
     Dosage: 0.5 GRAM, OD
     Route: 042
  2. SODIUM CHLORIDE [Suspect]
     Active Substance: SODIUM CHLORIDE
     Indication: Product used for unknown indication
     Route: 042
  3. BERBAMINE [Suspect]
     Active Substance: BERBAMINE
     Indication: Hepatocellular carcinoma
     Dosage: 112 MILLIGRAM, TID
     Route: 048
  4. ADENOSINE [Suspect]
     Active Substance: ADENOSINE
     Indication: Hepatocellular carcinoma
     Dosage: 1 GRAM, OD
     Route: 042
  5. MAGNESIUM ISOGLYCYRRHIZINATE [Suspect]
     Active Substance: MAGNESIUM ISOGLYCYRRHIZINATE
     Indication: Hepatocellular carcinoma
     Dosage: 200 MILLIGRAM, OD
     Route: 042

REACTIONS (3)
  - Drug ineffective [Unknown]
  - Decreased appetite [Unknown]
  - Fatigue [Unknown]
